FAERS Safety Report 7055423-1 (Version None)
Quarter: 2010Q4

REPORT INFORMATION
  Report Type: 
  Country: None (occurrence: None)
  Receive Date: 20101021
  Receipt Date: 20101018
  Transmission Date: 20110411
  Serious: Yes (Hospitalization)
  Sender: FDA-Public Use
  Company Number: FR-WYE-G06818310

PATIENT
  Sex: Male

DRUGS (4)
  1. TAZOCILLINE [Suspect]
     Route: 042
     Dates: start: 20100902, end: 20100910
  2. VANCOMYCIN [Suspect]
     Route: 042
     Dates: start: 20100902, end: 20100910
  3. TAHOR [Concomitant]
     Indication: DYSLIPIDAEMIA
     Dosage: UNKNOWN
     Route: 048
  4. COLCHIMAX [Suspect]
     Dosage: UNKNOWN
     Route: 048
     Dates: start: 20100902, end: 20100910

REACTIONS (9)
  - CHOLESTASIS [None]
  - CONDITION AGGRAVATED [None]
  - CYTOLYTIC HEPATITIS [None]
  - DRUG RASH WITH EOSINOPHILIA AND SYSTEMIC SYMPTOMS [None]
  - EOSINOPHILIA [None]
  - INFLAMMATION [None]
  - PYREXIA [None]
  - RASH [None]
  - WHITE BLOOD CELL COUNT INCREASED [None]
